FAERS Safety Report 6770238-7 (Version None)
Quarter: 2010Q2

REPORT INFORMATION
  Report Type: 
  Country: None (occurrence: None)
  Receive Date: 20100604
  Receipt Date: 20100524
  Transmission Date: 20101027
  Serious: Yes (Other)
  Sender: FDA-Public Use
  Company Number: 2010SP028835

PATIENT
  Sex: Female
  Weight: 77.1115 kg

DRUGS (4)
  1. NUVARING [Suspect]
     Indication: DRUG USE FOR UNKNOWN INDICATION
     Dosage: 1 DF;QM;VAG
     Route: 067
     Dates: start: 20100514
  2. ZOLOFT [Concomitant]
  3. XANAX [Concomitant]
  4. CIMETIDINE [Concomitant]

REACTIONS (8)
  - BACK PAIN [None]
  - BONE DENSITY DECREASED [None]
  - CHOLELITHIASIS [None]
  - EPILEPSY [None]
  - MUSCLE SPASMS [None]
  - NEPHROLITHIASIS [None]
  - OVARIAN CYST [None]
  - VOMITING [None]
